FAERS Safety Report 25559888 (Version 1)
Quarter: 2025Q3

REPORT INFORMATION
  Report Type: Spontaneous
  Country: US (occurrence: US)
  Receive Date: 20250715
  Receipt Date: 20250715
  Transmission Date: 20251021
  Serious: No
  Sender: NOVO NORDISK
  Company Number: US-NOVOPROD-1402129

PATIENT
  Sex: Male

DRUGS (1)
  1. OZEMPIC [Suspect]
     Active Substance: SEMAGLUTIDE
     Indication: Psoriatic arthropathy
     Route: 058
     Dates: start: 20241220

REACTIONS (4)
  - Rash [Unknown]
  - Rash [Unknown]
  - Product use in unapproved indication [Unknown]
  - Wrong technique in product usage process [Unknown]
